FAERS Safety Report 5284068-9 (Version None)
Quarter: 2007Q1

REPORT INFORMATION
  Report Type: 
  Country: None (occurrence: None)
  Receive Date: 20070327
  Receipt Date: 20070316
  Transmission Date: 20070707
  Serious: Yes (Hospitalization)
  Sender: FDA-Public Use
  Company Number: 2007BI005929

PATIENT
  Age: 65 Year
  Sex: Female
  Weight: 64.8644 kg

DRUGS (3)
  1. AVONEX [Suspect]
     Indication: MULTIPLE SCLEROSIS
     Dosage: 30 UG;QW;IM
     Route: 030
     Dates: start: 20000101, end: 20030101
  2. AVONEX [Suspect]
     Indication: MULTIPLE SCLEROSIS
     Dosage: 30 UG;QW;IM
     Route: 030
     Dates: start: 20030101, end: 20070114
  3. NOVANTRONE [Concomitant]

REACTIONS (6)
  - ASTHENIA [None]
  - DISORIENTATION [None]
  - ENCEPHALOPATHY [None]
  - FEEDING DISORDER [None]
  - HYPERSOMNIA [None]
  - LIVER DISORDER [None]
